FAERS Safety Report 6800677-7 (Version None)
Quarter: 2010Q2

REPORT INFORMATION
  Report Type: 
  Country: None (occurrence: None)
  Receive Date: 20100629
  Receipt Date: 20100622
  Transmission Date: 20101027
  Serious: Yes (Death)
  Sender: FDA-Public Use
  Company Number: PHHY2010JP40967

PATIENT
  Sex: Female
  Weight: 57 kg

DRUGS (7)
  1. DIOVAN [Suspect]
     Indication: HYPERTENSION
     Dosage: 80 MG, BID
     Dates: start: 20080501
  2. ARTIST [Concomitant]
     Indication: HYPERTENSION
     Dosage: 1.25 MG
     Route: 048
     Dates: start: 20080925
  3. ARTIST [Concomitant]
     Dosage: 2.5 MG
     Route: 048
  4. ARTIST [Concomitant]
     Dosage: 5 MG
     Route: 048
  5. CALBLOCK [Concomitant]
     Indication: HYPERTENSION
     Dosage: 8 MG
     Route: 048
     Dates: start: 20080501
  6. CALBLOCK [Concomitant]
     Dosage: 16 MG
     Route: 048
     Dates: start: 20080501, end: 20100115
  7. LIPITOR [Concomitant]
     Indication: HYPERTENSION
     Dosage: 5 MG
     Route: 048
     Dates: start: 20080501

REACTIONS (1)
  - LARGE INTESTINE CARCINOMA [None]
